FAERS Safety Report 8124341-X (Version None)
Quarter: 2012Q1

REPORT INFORMATION
  Report Type: 
  Country: None (occurrence: None)
  Receive Date: 20120209
  Receipt Date: 20120201
  Transmission Date: 20120608
  Serious: Yes (Other)
  Sender: FDA-Public Use
  Company Number: BR-JNJFOC-20120201924

PATIENT
  Sex: Male

DRUGS (4)
  1. MICONAZOLE [Suspect]
     Indication: EXPOSURE DURING BREAST FEEDING
     Route: 063
     Dates: end: 20120126
  2. MICONAZOLE [Suspect]
     Route: 065
     Dates: start: 20110101
  3. MICONAZOLE [Suspect]
     Indication: BACTERIAL INFECTION
     Route: 065
     Dates: start: 20111224, end: 20120126
  4. MICONAZOLE [Suspect]
     Route: 063

REACTIONS (4)
  - DRUG ADMINISTRATION ERROR [None]
  - DRUG PRESCRIBING ERROR [None]
  - ASPHYXIA [None]
  - BREAST FEEDING [None]
